FAERS Safety Report 7918812-6 (Version None)
Quarter: 2011Q4

REPORT INFORMATION
  Report Type: 
  Country: None (occurrence: None)
  Receive Date: 20111116
  Receipt Date: 20111115
  Transmission Date: 20120403
  Serious: Yes (Hospitalization)
  Sender: FDA-Public Use
  Company Number: US-ABBOTT-11P-163-0871097-00

PATIENT
  Sex: Female

DRUGS (20)
  1. COZAAR [Concomitant]
     Indication: HYPERTENSION
  2. ADVAIR DISKUS 100/50 [Concomitant]
     Indication: CHRONIC OBSTRUCTIVE PULMONARY DISEASE
  3. MURO 128 [Concomitant]
     Indication: DRY EYE
     Route: 047
  4. HUMIRA [Suspect]
     Indication: PSORIASIS
     Dates: start: 20080101
  5. LOVAZA [Concomitant]
     Indication: SUPPLEMENTATION THERAPY
  6. CYANOCOBALAMIN [Concomitant]
     Indication: NEUROPATHY PERIPHERAL
  7. SYNTHROID [Concomitant]
     Indication: HYPOTHYROIDISM
  8. SPIRIVA [Concomitant]
     Indication: ASTHMA
  9. LANTUS [Concomitant]
     Indication: DIABETES MELLITUS
  10. ASPIRIN [Concomitant]
     Indication: CARDIAC DISORDER
  11. NOVOLOG [Concomitant]
     Indication: DIABETES MELLITUS
  12. SPIRIVA [Concomitant]
     Indication: EMPHYSEMA
  13. ALLEGRA [Concomitant]
     Indication: PRURITUS
  14. SPIRIVA [Concomitant]
     Indication: CHRONIC OBSTRUCTIVE PULMONARY DISEASE
  15. ULTRAVATE [Concomitant]
     Indication: PSORIASIS
  16. RESTASIS [Concomitant]
     Indication: DRY EYE
  17. ALLEGRA [Concomitant]
     Indication: PSORIASIS
  18. TOPROL-XL [Concomitant]
     Indication: CORONARY ARTERY BYPASS
  19. LIPITOR [Concomitant]
     Indication: HYPERLIPIDAEMIA
  20. FMO CREAM [Concomitant]
     Indication: PSORIASIS

REACTIONS (5)
  - COUGH [None]
  - INCREASED UPPER AIRWAY SECRETION [None]
  - WHITE BLOOD CELL COUNT INCREASED [None]
  - DYSPNOEA [None]
  - PNEUMONIA [None]
